FAERS Safety Report 20518132 (Version 2)
Quarter: 2022Q3

REPORT INFORMATION
  Report Type: Spontaneous
  Country: US (occurrence: None)
  Receive Date: 20220225
  Receipt Date: 20220811
  Transmission Date: 20221027
  Serious: Yes (Other)
  Sender: FDA-Public Use
  Company Number: 2022A077636

PATIENT
  Age: 60 Year
  Sex: Female
  Weight: 108 kg

DRUGS (58)
  1. PRILOSEC [Suspect]
     Active Substance: OMEPRAZOLE MAGNESIUM
     Indication: Gastrooesophageal reflux disease
     Route: 048
     Dates: start: 2005, end: 2017
  2. PRILOSEC [Suspect]
     Active Substance: OMEPRAZOLE MAGNESIUM
     Indication: Gastrooesophageal reflux disease
     Route: 048
     Dates: start: 2005, end: 2017
  3. PRILOSEC [Suspect]
     Active Substance: OMEPRAZOLE MAGNESIUM
     Indication: Gastrooesophageal reflux disease
     Dosage: GENERIC
     Route: 065
     Dates: start: 2007, end: 2015
  4. PRILOSEC [Suspect]
     Active Substance: OMEPRAZOLE MAGNESIUM
     Indication: Gastrooesophageal reflux disease
     Dosage: GENERIC
     Route: 065
     Dates: start: 2007, end: 2015
  5. PREVACID [Suspect]
     Active Substance: LANSOPRAZOLE
     Indication: Gastrooesophageal reflux disease
     Route: 065
     Dates: start: 2005, end: 2017
  6. PREVACID [Suspect]
     Active Substance: LANSOPRAZOLE
     Indication: Gastrooesophageal reflux disease
     Route: 065
     Dates: start: 2005, end: 2017
  7. PROTONIX [Suspect]
     Active Substance: PANTOPRAZOLE SODIUM
     Indication: Gastrooesophageal reflux disease
     Route: 065
     Dates: start: 2005, end: 2017
  8. PROTONIX [Suspect]
     Active Substance: PANTOPRAZOLE SODIUM
     Indication: Gastrooesophageal reflux disease
     Route: 065
     Dates: start: 2005, end: 2017
  9. PROTONIX [Suspect]
     Active Substance: PANTOPRAZOLE SODIUM
     Indication: Gastrooesophageal reflux disease
     Dosage: GENERIC
     Route: 065
     Dates: start: 2011, end: 2022
  10. PROTONIX [Suspect]
     Active Substance: PANTOPRAZOLE SODIUM
     Indication: Gastrooesophageal reflux disease
     Dosage: GENERIC
     Route: 065
     Dates: start: 2011, end: 2022
  11. PLAVIX [Concomitant]
     Active Substance: CLOPIDOGREL BISULFATE
     Indication: Thrombosis
     Dates: start: 2007, end: 2012
  12. SIMVASTATIN [Concomitant]
     Active Substance: SIMVASTATIN
     Indication: Hyperlipidaemia
     Dates: start: 2009, end: 2014
  13. HYDROCHLOROTHIAZIDE [Concomitant]
     Active Substance: HYDROCHLOROTHIAZIDE
     Indication: Oedema
     Dates: start: 2007, end: 2014
  14. ALLOPURINOL [Concomitant]
     Active Substance: ALLOPURINOL
     Indication: Immunosuppressant drug level
     Dates: start: 2010
  15. AZITHROMYCIN [Concomitant]
     Active Substance: AZITHROMYCIN
     Indication: Infection
     Dates: start: 2007, end: 2017
  16. DIOVAN [Concomitant]
     Active Substance: VALSARTAN
     Indication: Hypertension
     Dates: start: 2007, end: 2011
  17. DOXYCYCLINE [Concomitant]
     Active Substance: DOXYCYCLINE
     Indication: Infection
     Dates: start: 2012, end: 2014
  18. FUROSEMIDE [Concomitant]
     Active Substance: FUROSEMIDE
     Indication: Hypertension
     Dates: start: 2008, end: 2017
  19. SULFAMETHOXAZOLE\TRIMETHOPRIM [Concomitant]
     Active Substance: SULFAMETHOXAZOLE\TRIMETHOPRIM
     Indication: Infection
     Dates: start: 2010, end: 2017
  20. VOLTAREN [Concomitant]
     Active Substance: DICLOFENAC SODIUM
     Indication: Pain
     Dates: start: 2010, end: 2015
  21. LOSARTAN [Concomitant]
     Active Substance: LOSARTAN
     Indication: Hypertension
     Dates: start: 2011
  22. CIPROFLOXACIN [Concomitant]
     Active Substance: CIPROFLOXACIN
     Indication: Infection
     Dates: start: 2006, end: 2015
  23. CELEBREX [Concomitant]
     Active Substance: CELECOXIB
     Indication: Infection
     Dates: start: 2006, end: 2009
  24. ENALAPRIL [Concomitant]
     Active Substance: ENALAPRIL
     Indication: Hypertension
     Dates: start: 2006, end: 2008
  25. LISINOPRIL [Concomitant]
     Active Substance: LISINOPRIL
     Indication: Hypertension
     Dates: start: 2009
  26. BUMETANIDE [Concomitant]
     Active Substance: BUMETANIDE
     Indication: Hypertension
     Dates: start: 2009
  27. TORSEMIDE [Concomitant]
     Active Substance: TORSEMIDE
     Indication: Hypertension
     Dates: start: 2007, end: 2016
  28. AMITRIPTYLINE [Concomitant]
     Active Substance: AMITRIPTYLINE
     Indication: Neuralgia
     Dates: start: 2008
  29. MELOXICAM [Concomitant]
     Active Substance: MELOXICAM
     Indication: Pain
     Dates: start: 2008
  30. CLOPIDOGREL [Concomitant]
     Active Substance: CLOPIDOGREL BISULFATE
     Indication: Hypertension
     Dates: start: 2007, end: 2012
  31. VALSARTAN [Concomitant]
     Active Substance: VALSARTAN
     Indication: Hypertension
     Dates: start: 2014, end: 2017
  32. ATORVASTATIN [Concomitant]
     Active Substance: ATORVASTATIN
     Indication: Hyperlipidaemia
     Dates: start: 2014, end: 2017
  33. CRESTOR [Concomitant]
     Active Substance: ROSUVASTATIN CALCIUM
     Indication: Hyperlipidaemia
  34. HYDRALAZINE [Concomitant]
     Active Substance: HYDRALAZINE HYDROCHLORIDE
     Indication: Hypertension
  35. LASIX [Concomitant]
     Active Substance: FUROSEMIDE
     Indication: Hypertension
  36. COQLO [Concomitant]
     Indication: Pain
     Dates: start: 2007
  37. MAGNESIUM OXIDE [Concomitant]
     Active Substance: MAGNESIUM OXIDE
     Indication: Product communication issue
     Dates: start: 2007
  38. TYLENOL [Concomitant]
     Active Substance: ACETAMINOPHEN
     Indication: Arthritis
     Dates: start: 2018
  39. TUMS [Concomitant]
     Active Substance: CALCIUM CARBONATE
     Dates: end: 2005
  40. DESYREL [Concomitant]
     Active Substance: TRAZODONE HYDROCHLORIDE
  41. KEFLEX [Concomitant]
     Active Substance: CEPHALEXIN
  42. RANEXA [Concomitant]
     Active Substance: RANOLAZINE
  43. ULTRACET [Concomitant]
     Active Substance: ACETAMINOPHEN\TRAMADOL HYDROCHLORIDE
  44. TYLOX [Concomitant]
     Active Substance: ACETAMINOPHEN\OXYCODONE HYDROCHLORIDE
  45. ISOSORBIDE MONONITRATE [Concomitant]
     Active Substance: ISOSORBIDE MONONITRATE
  46. PRISTIQ EXTENDED-RELEASE [Concomitant]
     Active Substance: DESVENLAFAXINE SUCCINATE
  47. LEVOTHYROXINE [Concomitant]
     Active Substance: LEVOTHYROXINE
  48. PROAIR HFA [Concomitant]
     Active Substance: ALBUTEROL SULFATE
  49. ACETAMINOPHEN\HYDROCODONE [Concomitant]
     Active Substance: ACETAMINOPHEN\HYDROCODONE
  50. NEVANAC [Concomitant]
     Active Substance: NEPAFENAC
  51. VIGAMOX [Concomitant]
     Active Substance: MOXIFLOXACIN HYDROCHLORIDE
  52. GABAPENTIN [Concomitant]
     Active Substance: GABAPENTIN
  53. CLONIDINE [Concomitant]
     Active Substance: CLONIDINE
  54. POTASSIUM CHLORIDE [Concomitant]
     Active Substance: POTASSIUM CHLORIDE
  55. METRONIDAZOLE [Concomitant]
     Active Substance: METRONIDAZOLE
  56. FLUCONAZOLE [Concomitant]
     Active Substance: FLUCONAZOLE
  57. CEPHALEXIN [Concomitant]
     Active Substance: CEPHALEXIN
  58. FLONASE [Concomitant]
     Active Substance: FLUTICASONE PROPIONATE

REACTIONS (4)
  - Chronic kidney disease [Not Recovered/Not Resolved]
  - Acute kidney injury [Unknown]
  - Nephrogenic anaemia [Unknown]
  - Renal failure [Unknown]

NARRATIVE: CASE EVENT DATE: 20070101
